FAERS Safety Report 15647272 (Version 10)
Quarter: 2021Q1

REPORT INFORMATION
  Report Type: Report from Study
  Country: JP (occurrence: JP)
  Receive Date: 20181122
  Receipt Date: 20210219
  Transmission Date: 20210419
  Serious: Yes (Hospitalization)
  Sender: FDA-Public Use
  Company Number: JP-ROCHE-2215138

PATIENT
  Age: 74 Year
  Sex: Male
  Weight: 69.8 kg

DRUGS (67)
  1. FEBUXOSTAT. [Concomitant]
     Active Substance: FEBUXOSTAT
     Indication: TUMOUR LYSIS SYNDROME
     Route: 048
     Dates: start: 20181001, end: 20181015
  2. LINAGLIPTIN [Concomitant]
     Active Substance: LINAGLIPTIN
     Indication: TYPE 2 DIABETES MELLITUS
     Route: 048
     Dates: start: 20180921, end: 20181111
  3. DALTEPARIN SODIUM [Concomitant]
     Active Substance: DALTEPARIN SODIUM
     Indication: DISSEMINATED INTRAVASCULAR COAGULATION
     Route: 042
     Dates: start: 20181005, end: 20181018
  4. INSULIN GLARGINE [Concomitant]
     Active Substance: INSULIN GLARGINE
     Route: 058
     Dates: start: 20181007
  5. PREDNISOLONE. [Concomitant]
     Active Substance: PREDNISOLONE
     Route: 048
     Dates: start: 20181022, end: 20181023
  6. AMLODIPINE BESILATE [Concomitant]
     Active Substance: AMLODIPINE BESYLATE
     Indication: HYPERTENSION
     Route: 048
     Dates: start: 20181006, end: 20181218
  7. MAGNESIUM OXIDE. [Concomitant]
     Active Substance: MAGNESIUM OXIDE
     Route: 048
     Dates: start: 20181010
  8. CEFTRIAXONE SODIUM HYDRATE [Concomitant]
     Active Substance: CEFTRIAXONE SODIUM
     Indication: URINARY TRACT INFECTION
     Route: 042
     Dates: start: 20181001, end: 20181013
  9. FUROSEMIDE. [Concomitant]
     Active Substance: FUROSEMIDE
     Route: 042
     Dates: start: 20181014, end: 20181205
  10. ACETAMINOPHEN. [Concomitant]
     Active Substance: ACETAMINOPHEN
     Indication: INFUSION RELATED REACTION
     Route: 048
     Dates: start: 20181011, end: 20181127
  11. VANCOMYCIN HYDROCHLORIDE. [Concomitant]
     Active Substance: VANCOMYCIN HYDROCHLORIDE
     Route: 042
     Dates: start: 20181031, end: 20181105
  12. POTASSIUM CHLORIDE. [Concomitant]
     Active Substance: POTASSIUM CHLORIDE
     Route: 042
     Dates: start: 20181205
  13. CALCIUM POLYSTYRENE SULFONATE [Concomitant]
     Active Substance: CALCIUM POLYSTYRENE SULFONATE
     Indication: HYPOKALAEMIA
     Route: 048
     Dates: start: 20181128, end: 20181128
  14. GRANISETRON HYDROCHLORIDE. [Concomitant]
     Active Substance: GRANISETRON HYDROCHLORIDE
     Indication: VOMITING
     Route: 042
     Dates: start: 20181011, end: 20181128
  15. PEGFILGRASTIM [Concomitant]
     Active Substance: PEGFILGRASTIM
     Indication: FEBRILE NEUTROPENIA
     Route: 058
     Dates: start: 20181014, end: 20181014
  16. PEGFILGRASTIM [Concomitant]
     Active Substance: PEGFILGRASTIM
     Route: 058
     Dates: start: 20181130, end: 20181130
  17. VINCRISTINE [Suspect]
     Active Substance: VINCRISTINE
     Indication: DIFFUSE LARGE B-CELL LYMPHOMA
     Dosage: DATE OF MOST RECENT DOSE OF VINCRISTINE PRIOR TO SAE ONSET: 11/OCT/2018: 2 MG
     Route: 042
     Dates: start: 20181011
  18. DOXORUBICIN [Suspect]
     Active Substance: DOXORUBICIN
     Indication: DIFFUSE LARGE B-CELL LYMPHOMA
     Dosage: DATE OF MOST RECENT DOSE OF DOXORUBICIN PRIOR TO SERIOUS ADVERSE EVENT ONSET: 11/OCT/2018 (100 MG)
     Route: 042
     Dates: start: 20181011
  19. FEBUXOSTAT. [Concomitant]
     Active Substance: FEBUXOSTAT
     Route: 048
     Dates: start: 20181129
  20. PREDNISOLONE. [Concomitant]
     Active Substance: PREDNISOLONE
     Route: 048
     Dates: start: 20181018, end: 20181019
  21. CASPOFUNGIN ACETATE. [Concomitant]
     Active Substance: CASPOFUNGIN ACETATE
     Indication: FUNGAL INFECTION
     Route: 042
     Dates: start: 20181030, end: 20181030
  22. CASPOFUNGIN ACETATE. [Concomitant]
     Active Substance: CASPOFUNGIN ACETATE
     Route: 042
     Dates: start: 20181031, end: 20181112
  23. KETOPROFEN. [Concomitant]
     Active Substance: KETOPROFEN
     Indication: BACK PAIN
     Route: 062
     Dates: start: 20181109
  24. SOLYUGEN G [Concomitant]
     Route: 042
     Dates: start: 20181122, end: 20181122
  25. SOLDEM 1 [Concomitant]
     Active Substance: DEXTROSE\SODIUM CHLORIDE\SODIUM LACTATE
     Route: 042
     Dates: start: 20181014, end: 20181014
  26. SOLDEM 1 [Concomitant]
     Active Substance: DEXTROSE\SODIUM CHLORIDE\SODIUM LACTATE
     Route: 042
     Dates: start: 20181025, end: 20181229
  27. SOLDEM 1 [Concomitant]
     Active Substance: DEXTROSE\SODIUM CHLORIDE\SODIUM LACTATE
     Route: 042
     Dates: start: 20181028, end: 20181028
  28. SOLDEM 1 [Concomitant]
     Active Substance: DEXTROSE\SODIUM CHLORIDE\SODIUM LACTATE
     Route: 042
     Dates: start: 20181129
  29. RITUXIMAB. [Suspect]
     Active Substance: RITUXIMAB
     Indication: DIFFUSE LARGE B-CELL LYMPHOMA
     Dosage: DATE OF MOST RECENT DOSE OF RITUXIMAB PRIOR TO SERIOUS ADVERSE EVENT ONSET: 11/OCT/2018 (750 MG)
     Route: 042
     Dates: start: 20181011
  30. CYCLOPHOSPHAMIDE. [Suspect]
     Active Substance: CYCLOPHOSPHAMIDE
     Indication: DIFFUSE LARGE B-CELL LYMPHOMA
     Dosage: DATE OF MOST RECENT DOSE OF CYCLOPHOSPHAMIDE PRIOR TO SERIOUS ADVERSE EVENT ONSET: 11/OCT/2018 (1500
     Route: 042
     Dates: start: 20181011
  31. FUROSEMIDE. [Concomitant]
     Active Substance: FUROSEMIDE
     Indication: CARDIAC FAILURE
     Route: 042
     Dates: start: 20181005, end: 20181013
  32. FUROSEMIDE. [Concomitant]
     Active Substance: FUROSEMIDE
     Route: 042
     Dates: start: 20181013, end: 20181017
  33. CASPOFUNGIN ACETATE. [Concomitant]
     Active Substance: CASPOFUNGIN ACETATE
     Indication: FEBRILE NEUTROPENIA
     Route: 042
     Dates: start: 20181205
  34. SOLYUGEN G [Concomitant]
     Route: 042
     Dates: start: 20181114, end: 20181115
  35. ULINASTATIN [Concomitant]
     Active Substance: ULINASTATIN
     Route: 042
     Dates: start: 20181122, end: 20181123
  36. HYDROXYZINE HYDROCHLORIDE. [Concomitant]
     Active Substance: HYDROXYZINE HYDROCHLORIDE
     Route: 030
     Dates: start: 20181122, end: 20181229
  37. SOLYUGEN F [Concomitant]
     Active Substance: CALCIUM CHLORIDE\POTASSIUM CHLORIDE\SODIUM ACETATE\SODIUM CHLORIDE
     Indication: DEHYDRATION
     Route: 042
     Dates: start: 20181122, end: 20181123
  38. DEQUALINIUM CHLORIDE [Concomitant]
     Active Substance: DEQUALINIUM CHLORIDE
     Route: 048
     Dates: start: 20181202
  39. PLACEBO [Suspect]
     Active Substance: UNSPECIFIED INGREDIENT
     Indication: DIFFUSE LARGE B-CELL LYMPHOMA
     Dosage: DATE OF MOST RECENT DOSE PRIOR TO SAE ONSET 12 OCT 2018
     Route: 042
     Dates: start: 20181012
  40. ETHYL LOFLAZEPATE [Concomitant]
     Active Substance: ETHYL LOFLAZEPATE
     Indication: INSOMNIA
     Route: 048
     Dates: start: 20181001
  41. MAGNESIUM OXIDE. [Concomitant]
     Active Substance: MAGNESIUM OXIDE
     Indication: CONSTIPATION
     Route: 048
     Dates: start: 20181009
  42. SOLDEM 1 [Concomitant]
     Active Substance: DEXTROSE\SODIUM CHLORIDE\SODIUM LACTATE
     Indication: DEHYDRATION
     Route: 042
     Dates: start: 20181004, end: 20181018
  43. INSULIN ASPART [Concomitant]
     Active Substance: INSULIN ASPART
     Route: 058
     Dates: start: 20181006
  44. PREDNISOLONE. [Concomitant]
     Active Substance: PREDNISOLONE
     Route: 048
     Dates: start: 20181020, end: 20181021
  45. LOXOPROFEN SODIUM HYDRATE [Concomitant]
     Active Substance: LOXOPROFEN SODIUM DIHYDRATE
     Indication: BACK PAIN
     Route: 062
     Dates: start: 20181026
  46. VANCOMYCIN HYDROCHLORIDE. [Concomitant]
     Active Substance: VANCOMYCIN HYDROCHLORIDE
     Indication: PNEUMONIA
     Route: 042
     Dates: start: 20181028, end: 20181030
  47. SOLYUGEN G [Concomitant]
     Indication: DEHYDRATION
     Route: 042
     Dates: start: 20181114, end: 20181114
  48. ULINASTATIN [Concomitant]
     Active Substance: ULINASTATIN
     Indication: PANCREATITIS
     Route: 042
     Dates: start: 20181114, end: 20181115
  49. PREDNISONE. [Suspect]
     Active Substance: PREDNISONE
     Indication: DIFFUSE LARGE B-CELL LYMPHOMA
     Dosage: ON DAYS 1?5 OF EACH 21 DAYS CYCLE?DATE OF MOST RECENT DOSE OF PREDNISONE PRIOR TO SERIOUS ADVERSE EV
     Route: 048
     Dates: start: 20181011
  50. FEBUXOSTAT. [Concomitant]
     Active Substance: FEBUXOSTAT
     Route: 048
     Dates: start: 20181016, end: 20181128
  51. LANSOPRAZOLE. [Concomitant]
     Active Substance: LANSOPRAZOLE
     Indication: GASTRIC ULCER
     Route: 048
     Dates: start: 20181001
  52. QUAZEPAM. [Concomitant]
     Active Substance: QUAZEPAM
     Indication: INSOMNIA
     Route: 048
     Dates: start: 20181001
  53. D?CHLORPHENIRAMINE MALEATE [Concomitant]
     Active Substance: DEXCHLORPHENIRAMINE MALEATE
     Indication: INFUSION RELATED REACTION
     Route: 042
     Dates: start: 20181011, end: 20181127
  54. PREDNISOLONE. [Concomitant]
     Active Substance: PREDNISOLONE
     Indication: STEROID WITHDRAWAL SYNDROME
     Route: 048
     Dates: start: 20181016, end: 20181017
  55. FLUCONAZOLE. [Concomitant]
     Active Substance: FLUCONAZOLE
     Indication: FUNGAL INFECTION
     Route: 048
     Dates: start: 20181021, end: 20181026
  56. HYDROXYZINE HYDROCHLORIDE. [Concomitant]
     Active Substance: HYDROXYZINE HYDROCHLORIDE
     Indication: INSOMNIA
     Route: 030
     Dates: start: 20181114, end: 20181114
  57. POTASSIUM CHLORIDE. [Concomitant]
     Active Substance: POTASSIUM CHLORIDE
     Indication: HYPOKALAEMIA
     Route: 042
     Dates: start: 20181115, end: 20181115
  58. PRAVASTATIN SODIUM. [Concomitant]
     Active Substance: PRAVASTATIN SODIUM
     Indication: HYPERLIPIDAEMIA
     Route: 048
     Dates: start: 20180921
  59. LINAGLIPTIN [Concomitant]
     Active Substance: LINAGLIPTIN
     Route: 048
     Dates: start: 20181129
  60. CASPOFUNGIN ACETATE. [Concomitant]
     Active Substance: CASPOFUNGIN ACETATE
     Indication: FUNGAL INFECTION
     Route: 042
     Dates: start: 20181012, end: 20181020
  61. INSULIN ASPART [Concomitant]
     Active Substance: INSULIN ASPART
     Indication: HYPERGLYCAEMIA
     Route: 058
     Dates: start: 20181006, end: 20181128
  62. INSULIN ASPART [Concomitant]
     Active Substance: INSULIN ASPART
     Route: 058
     Dates: start: 20181009
  63. INSULIN GLARGINE [Concomitant]
     Active Substance: INSULIN GLARGINE
     Indication: HYPERGLYCAEMIA
     Route: 058
     Dates: start: 20181006, end: 20181201
  64. INSULIN GLARGINE [Concomitant]
     Active Substance: INSULIN GLARGINE
     Route: 058
     Dates: start: 20181007, end: 20181129
  65. PREDNISOLONE. [Concomitant]
     Active Substance: PREDNISOLONE
     Route: 048
     Dates: start: 20181024, end: 20181025
  66. HYDROCORTISONE. [Concomitant]
     Active Substance: HYDROCORTISONE
     Indication: HAEMORRHOIDS
     Dates: start: 20181107
  67. SODIUM POLYSTYRENE SULFONATE. [Concomitant]
     Active Substance: SODIUM POLYSTYRENE SULFONATE
     Route: 048
     Dates: start: 20181129, end: 20181203

REACTIONS (1)
  - Cholangitis [Recovered/Resolved]

NARRATIVE: CASE EVENT DATE: 20181112
